FAERS Safety Report 19667236 (Version 3)
Quarter: 2021Q3

REPORT INFORMATION
  Report Type: Spontaneous
  Country: MX (occurrence: MX)
  Receive Date: 20210806
  Receipt Date: 20210816
  Transmission Date: 20211014
  Serious: Yes (Other)
  Sender: FDA-Public Use
  Company Number: MX-PFIZER INC-202100968389

PATIENT
  Age: 56 Year
  Sex: Male

DRUGS (6)
  1. TRAMADOL + PARACETAMOL [Concomitant]
     Active Substance: ACETAMINOPHEN\TRAMADOL
     Dosage: UNK, 3X/DAY (37.5 MG/325 MG)
  2. GABAPENTIN. [Suspect]
     Active Substance: GABAPENTIN
     Indication: SPINAL STENOSIS
     Dosage: UNK, SINGLE (A DOSE OF GABAPENTIN)
  3. TRAMADOL + PARACETAMOL [Concomitant]
     Active Substance: ACETAMINOPHEN\TRAMADOL
     Indication: SPINAL STENOSIS
     Dosage: UNK, 3X/DAY (18.7 MG/162.5 MG EVERY EIGHT HOURS)
  4. GABAPENTIN. [Suspect]
     Active Substance: GABAPENTIN
     Dosage: 1800 MG, 300 MG (2?2?2)
  5. GABAPENTIN. [Suspect]
     Active Substance: GABAPENTIN
     Dosage: 300 MG, 3X/DAY
  6. TRAMADOL + PARACETAMOL [Concomitant]
     Active Substance: ACETAMINOPHEN\TRAMADOL
     Dosage: UNK, 3X/DAY (TD OF 112.5 MG/975 MG)

REACTIONS (2)
  - Liver injury [Recovered/Resolved]
  - Hepatotoxicity [Recovered/Resolved]
